FAERS Safety Report 4454525-3 (Version None)
Quarter: 2004Q3

REPORT INFORMATION
  Report Type: 
  Country: None (occurrence: None)
  Receive Date: 20040921
  Receipt Date: 20040910
  Transmission Date: 20050211
  Serious: Yes (Death)
  Sender: FDA-Public Use
  Company Number: US-JNJFOC-20040704293

PATIENT
  Sex: Female

DRUGS (5)
  1. DURAGESIC [Suspect]
     Route: 062
     Dates: end: 20040315
  2. MIRAPEX [Concomitant]
     Route: 049
  3. EFFEXOR [Concomitant]
     Indication: DEPRESSION
     Route: 049
  4. TYLENOL # 4 WITH CODEINE [Concomitant]
     Indication: DRUG USE FOR UNKNOWN INDICATION
     Route: 049
  5. CARDURA [Concomitant]
     Indication: DRUG USE FOR UNKNOWN INDICATION
     Route: 049

REACTIONS (1)
  - DEATH [None]
